FAERS Safety Report 12503203 (Version 5)
Quarter: 2017Q2

REPORT INFORMATION
  Report Type: Report from Study
  Country: JP (occurrence: JP)
  Receive Date: 20160628
  Receipt Date: 20170503
  Transmission Date: 20170830
  Serious: Yes (Death, Other)
  Sender: FDA-Public Use
  Company Number: PHJP2016JP017871

PATIENT
  Age: 22 Year
  Sex: Female

DRUGS (28)
  1. TRAMETINIB [Suspect]
     Active Substance: TRAMETINIB
     Indication: MALIGNANT MELANOMA STAGE IV
     Dosage: 2 MG, QD
     Route: 048
     Dates: start: 20160601, end: 20160611
  2. TAFINLAR [Suspect]
     Active Substance: DABRAFENIB MESYLATE
     Indication: MALIGNANT MELANOMA STAGE IV
     Dosage: 300 MG, QD
     Route: 048
     Dates: start: 20160601, end: 20160611
  3. ABSTRAL [Concomitant]
     Active Substance: FENTANYL CITRATE
     Indication: PRODUCT USED FOR UNKNOWN INDICATION
     Dosage: UNK
     Route: 065
  4. PREDNISOLONE. [Concomitant]
     Active Substance: PREDNISOLONE
     Dosage: 20 MG, QD
     Route: 048
     Dates: start: 20160617
  5. PREDNISOLONE. [Concomitant]
     Active Substance: PREDNISOLONE
     Dosage: 15 MG, QD
     Route: 048
     Dates: start: 20160620, end: 20160620
  6. FUROSEMIDE. [Concomitant]
     Active Substance: FUROSEMIDE
     Indication: PRODUCT USED FOR UNKNOWN INDICATION
     Dosage: UNK
     Route: 065
     Dates: end: 20160517
  7. ZELBORAF [Concomitant]
     Active Substance: VEMURAFENIB
     Dosage: 480 MG, BID
     Route: 065
     Dates: start: 20160621
  8. ZOLEDRONIC ACID FOR I.V. INFUSION [Suspect]
     Active Substance: ZOLEDRONIC ACID
     Indication: HYPERCALCAEMIA
     Dosage: UNK
     Route: 041
     Dates: start: 20160517
  9. OXINORM//OXYCODONE HYDROCHLORIDE [Concomitant]
     Active Substance: OXYCODONE HYDROCHLORIDE
     Indication: PRODUCT USED FOR UNKNOWN INDICATION
     Dosage: UNK
     Route: 048
  10. PREDNISOLONE. [Concomitant]
     Active Substance: PREDNISOLONE
     Indication: RASH
     Dosage: 30 MG, QD
     Route: 048
     Dates: start: 20160613
  11. PREDNISOLONE. [Concomitant]
     Active Substance: PREDNISOLONE
     Dosage: 15 MG, QD
     Route: 048
     Dates: start: 20160622
  12. SPIRONOLACTONE. [Concomitant]
     Active Substance: SPIRONOLACTONE
     Indication: PRODUCT USED FOR UNKNOWN INDICATION
     Dosage: UNK
     Route: 065
     Dates: end: 20160517
  13. FUROSEMIDE. [Concomitant]
     Active Substance: FUROSEMIDE
     Dosage: 2 DF (2 TABLET), QD
     Route: 065
     Dates: start: 20160527
  14. TAFINLAR [Suspect]
     Active Substance: DABRAFENIB MESYLATE
     Dosage: 100 MG, BID
     Route: 048
     Dates: start: 20160620, end: 20160621
  15. SANDOSTATIN [Suspect]
     Active Substance: OCTREOTIDE ACETATE
     Indication: NAUSEA
     Dosage: UNK
     Route: 065
     Dates: start: 20160324
  16. FENTOS [Concomitant]
     Active Substance: FENTANYL
     Indication: PRODUCT USED FOR UNKNOWN INDICATION
     Dosage: UNK
     Route: 065
  17. OPSO [Concomitant]
     Active Substance: MORPHINE HYDROCHLORIDE
     Indication: PRODUCT USED FOR UNKNOWN INDICATION
     Dosage: UNK
     Route: 048
  18. ZELBORAF [Concomitant]
     Active Substance: VEMURAFENIB
     Indication: MALIGNANT MELANOMA STAGE IV
     Dosage: 1920 MG, QD
     Route: 065
     Dates: start: 20151117, end: 20151126
  19. ZELBORAF [Concomitant]
     Active Substance: VEMURAFENIB
     Dosage: 960 MG, UNK
     Route: 065
     Dates: start: 20151215, end: 20160322
  20. LASIX [Concomitant]
     Active Substance: FUROSEMIDE
     Indication: PRODUCT USED FOR UNKNOWN INDICATION
     Dosage: 1 DF (1 AMPULE), QD
     Route: 065
     Dates: start: 20160328
  21. NIVOLUMAB [Concomitant]
     Active Substance: NIVOLUMAB
     Indication: MALIGNANT MELANOMA STAGE IV
     Dosage: UNK
     Route: 065
     Dates: start: 20160324, end: 20160324
  22. NIVOLUMAB [Concomitant]
     Active Substance: NIVOLUMAB
     Dosage: 120 MG, UNK
     Route: 065
     Dates: start: 20160412, end: 20160412
  23. NIVOLUMAB [Concomitant]
     Active Substance: NIVOLUMAB
     Dosage: 120 MG, UNK
     Route: 065
     Dates: start: 20160426, end: 20160426
  24. TRAMETINIB [Suspect]
     Active Substance: TRAMETINIB
     Dosage: 1.5 MG, QD
     Route: 048
     Dates: start: 20160620, end: 20160621
  25. NAIXAN [Concomitant]
     Active Substance: NAPROXEN SODIUM
     Indication: PRODUCT USED FOR UNKNOWN INDICATION
     Dosage: UNK
     Route: 065
  26. ZELBORAF [Concomitant]
     Active Substance: VEMURAFENIB
     Dosage: 1920 MG, UNK
     Route: 065
     Dates: start: 20160519, end: 20160531
  27. PREDNISOLONE. [Concomitant]
     Active Substance: PREDNISOLONE
     Dosage: 20 MG, QD
     Route: 042
     Dates: start: 20160620, end: 20160621
  28. FUROSEMIDE. [Concomitant]
     Active Substance: FUROSEMIDE
     Dosage: 1 DF (1 TABLET), QD
     Route: 065
     Dates: start: 20160524

REACTIONS (24)
  - Hypoaesthesia [Unknown]
  - Malignant melanoma stage IV [Unknown]
  - Palpitations [Recovered/Resolved]
  - Decreased appetite [Unknown]
  - Nuchal rigidity [Unknown]
  - Malignant neoplasm progression [Unknown]
  - Sinus tachycardia [Recovered/Resolved]
  - Pyrexia [Recovered/Resolved]
  - Hyponatraemia [Unknown]
  - Chest pain [Unknown]
  - Metastases to bone [Unknown]
  - Eyelid disorder [Unknown]
  - Back pain [Unknown]
  - Sputum retention [Unknown]
  - Rash [Recovering/Resolving]
  - Heart rate increased [Unknown]
  - C-reactive protein increased [Unknown]
  - Hypercalcaemia [Unknown]
  - Pleural effusion [Unknown]
  - Death [Fatal]
  - Metastases to meninges [Unknown]
  - Dyslalia [Unknown]
  - Metastases to lung [Unknown]
  - Oxygen saturation decreased [Unknown]

NARRATIVE: CASE EVENT DATE: 20160326
